FAERS Safety Report 4730560-2 (Version None)
Quarter: 2005Q3

REPORT INFORMATION
  Report Type: 
  Country: None (occurrence: None)
  Receive Date: 20050725
  Receipt Date: 20050316
  Transmission Date: 20060218
  Serious: No
  Sender: FDA-Public Use
  Company Number: USA050393456

PATIENT
  Age: 41 Year
  Sex: Female

DRUGS (2)
  1. STRATTERA [Suspect]
     Indication: ATTENTION DEFICIT/HYPERACTIVITY DISORDER
     Dosage: 80 MG DAY
     Dates: start: 20050310
  2. RITALIN [Concomitant]

REACTIONS (8)
  - ASTHENIA [None]
  - DISTURBANCE IN ATTENTION [None]
  - FATIGUE [None]
  - LETHARGY [None]
  - MALAISE [None]
  - NAUSEA [None]
  - SOMNOLENCE [None]
  - VOMITING [None]
